FAERS Safety Report 6732195-9 (Version None)
Quarter: 2010Q2

REPORT INFORMATION
  Report Type: 
  Country: None (occurrence: None)
  Receive Date: 20100519
  Receipt Date: 20100511
  Transmission Date: 20101027
  Serious: Yes (Hospitalization)
  Sender: FDA-Public Use
  Company Number: A0794728A

PATIENT
  Sex: Female

DRUGS (1)
  1. AVANDIA [Suspect]
     Dosage: 4U PER DAY
     Route: 048
     Dates: start: 20060501, end: 20061130

REACTIONS (3)
  - CARDIAC FAILURE CONGESTIVE [None]
  - TINNITUS [None]
  - WALKING AID USER [None]
